FAERS Safety Report 5449305-6 (Version None)
Quarter: 2007Q3

REPORT INFORMATION
  Report Type: 
  Country: None (occurrence: None)
  Receive Date: 20070911
  Receipt Date: 20070830
  Transmission Date: 20080115
  Serious: Yes (Other)
  Sender: FDA-Public Use
  Company Number: US-PFIZER INC-2007074220

PATIENT
  Sex: Female
  Weight: 53 kg

DRUGS (7)
  1. DEMULEN 1/50-21 [Suspect]
     Indication: CONTRACEPTION
     Route: 048
  2. DEMULEN 1/35-21 [Suspect]
     Indication: CONTRACEPTION
     Route: 048
  3. LYRICA [Suspect]
     Indication: NEURALGIA
  4. LYRICA [Suspect]
  5. LEVOXYL [Concomitant]
  6. PROZAC [Concomitant]
  7. AMITRIPTYLINE HCL [Concomitant]

REACTIONS (2)
  - DRUG WITHDRAWAL SYNDROME [None]
  - MULTIPLE SCLEROSIS RELAPSE [None]
